FAERS Safety Report 17980941 (Version 2)
Quarter: 2020Q4

REPORT INFORMATION
  Report Type: Spontaneous
  Country: CA (occurrence: CA)
  Receive Date: 20200704
  Receipt Date: 20201220
  Transmission Date: 20210113
  Serious: Yes (Hospitalization, Other)
  Sender: FDA-Public Use
  Company Number: CA-SPECGX-T202001195

PATIENT
  Age: 25 Year
  Sex: Female

DRUGS (22)
  1. SUBOXONE [Suspect]
     Active Substance: BUPRENORPHINE HYDROCHLORIDE\NALOXONE HYDROCHLORIDE
     Indication: PRODUCT USED FOR UNKNOWN INDICATION
     Dosage: 1080 MILLIGRAM
     Route: 048
  2. TYLENOL [Concomitant]
     Active Substance: ACETAMINOPHEN
     Indication: PREMEDICATION
     Dosage: 650 MILLIGRAM
     Route: 048
     Dates: start: 20180907
  3. RITUXIMAB. [Suspect]
     Active Substance: RITUXIMAB
     Indication: LUPUS NEPHRITIS
     Dosage: 1000 MILLIGRAM, 1 EVERY 15 DAYS
     Route: 042
  4. PREDNISONE. [Suspect]
     Active Substance: PREDNISONE
     Dosage: 7.5 MILLIGRAM, QD
     Route: 065
  5. SILDENAFIL. [Concomitant]
     Active Substance: SILDENAFIL
     Indication: PRODUCT USED FOR UNKNOWN INDICATION
     Dosage: 25 MILLIGRAM, QD
     Route: 048
  6. ADALAT [Concomitant]
     Active Substance: NIFEDIPINE
     Indication: PRODUCT USED FOR UNKNOWN INDICATION
     Dosage: UNK
     Route: 065
  7. ANCEF [Concomitant]
     Active Substance: CEFAZOLIN SODIUM
     Indication: PRODUCT USED FOR UNKNOWN INDICATION
     Dosage: 1 GRAM, Q8H
     Route: 042
  8. METHADOSE [Suspect]
     Active Substance: METHADONE HYDROCHLORIDE
     Indication: PRODUCT USED FOR UNKNOWN INDICATION
     Dosage: 1080 MILLIGRAM
     Route: 048
  9. NIFEDIPINE XL [Concomitant]
     Active Substance: NIFEDIPINE
     Indication: PRODUCT USED FOR UNKNOWN INDICATION
     Dosage: 120 MILLIGRAM, QD
     Route: 048
  10. PREDNISONE. [Suspect]
     Active Substance: PREDNISONE
     Dosage: 5 MILLIGRAM, QD
     Route: 048
  11. METHYLPREDNISOLONE SODIUM SUCCINATE. [Concomitant]
     Active Substance: METHYLPREDNISOLONE SODIUM SUCCINATE
     Indication: PREMEDICATION
     Dosage: 100 MILLIGRAM
     Route: 042
     Dates: start: 20180907
  12. MYCOPHENOLATE MOFETIL. [Suspect]
     Active Substance: MYCOPHENOLATE MOFETIL
     Indication: PRODUCT USED FOR UNKNOWN INDICATION
     Dosage: 1080 MILLIGRAM
     Route: 048
  13. RITUXIMAB. [Suspect]
     Active Substance: RITUXIMAB
     Indication: VASCULITIS
     Dosage: 1000 MILLIGRAM, 1 EVERY 15 DAYS
     Route: 042
     Dates: start: 20180907
  14. RITUXIMAB. [Suspect]
     Active Substance: RITUXIMAB
     Indication: SYSTEMIC LUPUS ERYTHEMATOSUS
     Dosage: 1000 MILLIGRAM, 1 EVERY 15 DAYS
     Route: 042
  15. PREDNISONE. [Suspect]
     Active Substance: PREDNISONE
     Indication: PREMEDICATION
     Dosage: 50 MILLIGRAM
     Route: 048
  16. SILDENAFIL. [Concomitant]
     Active Substance: SILDENAFIL
     Dosage: 50 MILLIGRAM, BID
     Route: 048
  17. BENADRYL [Concomitant]
     Active Substance: DIPHENHYDRAMINE HYDROCHLORIDE
     Indication: PREMEDICATION
     Dosage: 50 MILLIGRAM
     Route: 048
     Dates: start: 20180907
  18. RAMIPRIL. [Concomitant]
     Active Substance: RAMIPRIL
     Indication: PRODUCT USED FOR UNKNOWN INDICATION
     Dosage: 2.5 MILLIGRAM, QD
     Route: 048
  19. VENLAFAXINE [Concomitant]
     Active Substance: VENLAFAXINE HYDROCHLORIDE
     Indication: PRODUCT USED FOR UNKNOWN INDICATION
     Dosage: UNK
     Route: 065
  20. ELIQUIS [Concomitant]
     Active Substance: APIXABAN
     Indication: PRODUCT USED FOR UNKNOWN INDICATION
     Dosage: 5 MILLIGRAM, 2 EVERY 1 DAYS
     Route: 048
  21. HYDROXYCHLOROQUINE SULFATE. [Concomitant]
     Active Substance: HYDROXYCHLOROQUINE SULFATE
     Indication: PRODUCT USED FOR UNKNOWN INDICATION
     Dosage: 400 MILLIGRAM, QD
     Route: 048
  22. OLANZAPINE. [Concomitant]
     Active Substance: OLANZAPINE
     Indication: PRODUCT USED FOR UNKNOWN INDICATION
     Dosage: UNK
     Route: 065

REACTIONS (38)
  - Hordeolum [Recovered/Resolved]
  - Glossodynia [Not Recovered/Not Resolved]
  - Cerebrovascular accident [Not Recovered/Not Resolved]
  - Haemoglobin decreased [Not Recovered/Not Resolved]
  - Oral pain [Not Recovered/Not Resolved]
  - Off label use [Not Recovered/Not Resolved]
  - Impaired healing [Not Recovered/Not Resolved]
  - Alopecia [Not Recovered/Not Resolved]
  - Blood pressure diastolic abnormal [Unknown]
  - Drug ineffective [Not Recovered/Not Resolved]
  - Haematocrit decreased [Not Recovered/Not Resolved]
  - Lymphocyte percentage decreased [Not Recovered/Not Resolved]
  - Blood pressure increased [Unknown]
  - Intentional product use issue [Not Recovered/Not Resolved]
  - Amputation [Recovered/Resolved]
  - Infection [Recovered/Resolved]
  - Abdominal discomfort [Not Recovered/Not Resolved]
  - C-reactive protein increased [Not Recovered/Not Resolved]
  - Double stranded DNA antibody positive [Not Recovered/Not Resolved]
  - Fatigue [Not Recovered/Not Resolved]
  - Injection site extravasation [Not Recovered/Not Resolved]
  - Pain in extremity [Not Recovered/Not Resolved]
  - Asthenia [Unknown]
  - Osteomyelitis [Not Recovered/Not Resolved]
  - Localised infection [Recovered/Resolved]
  - Livedo reticularis [Not Recovered/Not Resolved]
  - Muscular weakness [Recovered/Resolved]
  - Skin discolouration [Recovering/Resolving]
  - Skin mass [Not Recovered/Not Resolved]
  - Thrombophlebitis [Not Recovered/Not Resolved]
  - Heart rate increased [Unknown]
  - Rash [Not Recovered/Not Resolved]
  - Rash erythematous [Recovering/Resolving]
  - Nodule [Recovered/Resolved]
  - Necrosis [Recovered/Resolved]
  - Ulcer [Not Recovered/Not Resolved]
  - Arthralgia [Not Recovered/Not Resolved]
  - Red cell distribution width increased [Not Recovered/Not Resolved]

NARRATIVE: CASE EVENT DATE: 2018
